FAERS Safety Report 10219522 (Version 1)
Quarter: 2014Q2

REPORT INFORMATION
  Report Type: Other
  Country: JP (occurrence: JP)
  Receive Date: 20140605
  Receipt Date: 20140605
  Transmission Date: 20141212
  Serious: Yes (Hospitalization)
  Sender: FDA-Public Use
  Company Number: JP-BRISTOL-MYERS SQUIBB COMPANY-20938940

PATIENT
  Age: 28 Year
  Sex: Male

DRUGS (10)
  1. TAXOL [Suspect]
     Indication: GERM CELL CANCER
     Route: 042
  2. VEPESID [Suspect]
     Indication: GERM CELL CANCER
     Route: 042
  3. IFOSFAMIDE [Suspect]
     Indication: GERM CELL CANCER
     Dosage: 1DF = 1G/M2
  4. CARBOPLATIN [Suspect]
     Indication: GERM CELL CANCER
  5. CISPLATIN [Suspect]
     Indication: GERM CELL CANCER
  6. BLEOMYCIN [Suspect]
     Indication: GERM CELL CANCER
     Dosage: 1DF = 150MG/BODY
  7. GEMCITABINE [Suspect]
     Indication: GERM CELL CANCER
  8. OXALIPLATIN [Suspect]
     Indication: GERM CELL CANCER
  9. IRINOTECAN [Suspect]
     Indication: GERM CELL CANCER
  10. NEDAPLATIN [Suspect]
     Indication: GERM CELL CANCER

REACTIONS (1)
  - Acute myeloid leukaemia [Unknown]
